FAERS Safety Report 6579763-5 (Version None)
Quarter: 2010Q1

REPORT INFORMATION
  Report Type: 
  Country: None (occurrence: None)
  Receive Date: 20100212
  Receipt Date: 20100209
  Transmission Date: 20100710
  Serious: Yes (Hospitalization)
  Sender: FDA-Public Use
  Company Number: A0844059A

PATIENT
  Age: 71 Year
  Sex: Male
  Weight: 81.8 kg

DRUGS (1)
  1. AVANDIA [Suspect]
     Route: 048
     Dates: start: 20000101, end: 20060101

REACTIONS (4)
  - AMNESIA [None]
  - DISABILITY [None]
  - MYOCARDIAL INFARCTION [None]
  - OEDEMA [None]
